FAERS Safety Report 5758615-4 (Version None)
Quarter: 2008Q2

REPORT INFORMATION
  Report Type: 
  Country: None (occurrence: None)
  Receive Date: 20080604
  Receipt Date: 20080528
  Transmission Date: 20081010
  Serious: Yes (Death)
  Sender: FDA-Public Use
  Company Number: B0523416A

PATIENT
  Sex: Male

DRUGS (6)
  1. ZYBAN [Suspect]
     Indication: DRUG USE FOR UNKNOWN INDICATION
     Dosage: 150MG TWICE PER DAY
     Route: 065
  2. ACETAMINOPHEN W/ CODEINE [Concomitant]
     Route: 065
  3. LIPITOR [Concomitant]
     Route: 065
  4. DIAZEPAM [Concomitant]
     Route: 065
  5. ZOLOFT [Concomitant]
     Route: 065
  6. JEZIL [Concomitant]
     Route: 065

REACTIONS (5)
  - BLOOD CREATINE PHOSPHOKINASE INCREASED [None]
  - HEPATIC ENZYME INCREASED [None]
  - MUSCULAR WEAKNESS [None]
  - RENAL FAILURE [None]
  - RHABDOMYOLYSIS [None]
